FAERS Safety Report 9769746 (Version 1)
Quarter: 2013Q4

REPORT INFORMATION
  Report Type: Spontaneous
  Country: US (occurrence: US)
  Receive Date: 20131218
  Receipt Date: 20131218
  Transmission Date: 20140711
  Serious: No
  Sender: FDA-Public Use
  Company Number: US-VERTEX PHARMACEUTICALS INC-AE-2011-000576

PATIENT
  Sex: 0

DRUGS (5)
  1. INCIVEK [Suspect]
     Indication: HEPATITIS C
     Route: 048
     Dates: start: 20110714
  2. RIBAVIRIN [Concomitant]
     Indication: HEPATITIS C
     Route: 048
     Dates: start: 20110714
  3. PEGINTERFERON ALPHA 2B [Concomitant]
     Indication: HEPATITIS C
     Route: 058
     Dates: start: 20110714
  4. OMEPRAZOLE [Concomitant]
     Route: 048
  5. METOPROLOL ER [Concomitant]
     Route: 048

REACTIONS (2)
  - Insomnia [Unknown]
  - Nausea [Recovered/Resolved]
